FAERS Safety Report 12747945 (Version 2)
Quarter: 2016Q4

REPORT INFORMATION
  Report Type: Spontaneous
  Country: JP (occurrence: JP)
  Receive Date: 20160915
  Receipt Date: 20161101
  Transmission Date: 20170207
  Serious: Yes (Hospitalization, Other)
  Sender: FDA-Public Use
  Company Number: JP-PFIZER INC-2016431176

PATIENT
  Age: 84 Year
  Sex: Female
  Weight: 56 kg

DRUGS (13)
  1. CINAL [Concomitant]
     Active Substance: ASCORBIC ACID\CALCIUM PANTOTHENATE
     Dosage: UNK
     Route: 048
  2. TRAZENTA [Concomitant]
     Active Substance: LINAGLIPTIN
     Dosage: 5 MG, DAILY
     Route: 048
  3. WARFARIN [Concomitant]
     Active Substance: WARFARIN
     Dosage: 2 MG, DAILY
     Route: 048
  4. FUROSEMIDE. [Concomitant]
     Active Substance: FUROSEMIDE
     Dosage: 10 MG, DAILY
     Route: 048
  5. MAGMITT [Concomitant]
     Active Substance: MAGNESIUM OXIDE
     Dosage: 400 MG, DAILY
     Route: 048
  6. FERROMIA [Concomitant]
     Active Substance: FERROUS CITRATE
     Dosage: 50 MG, DAILY
     Route: 048
  7. THYRADIN S [Concomitant]
     Active Substance: LEVOTHYROXINE SODIUM
     Dosage: 25 UG, DAILY
     Route: 048
  8. NEXIUM [Concomitant]
     Active Substance: ESOMEPRAZOLE MAGNESIUM
     Dosage: 20 MG, DAILY
     Route: 048
  9. NAUZELIN [Concomitant]
     Active Substance: DOMPERIDONE
     Dosage: 10 MG, DAILY
     Route: 048
  10. MAINTATE [Concomitant]
     Active Substance: BISOPROLOL FUMARATE
     Dosage: 0.625 MG, DAILY
     Route: 048
  11. MUCODYNE [Concomitant]
     Active Substance: CARBOCYSTEINE
     Dosage: 1500 MG, DAILY
     Route: 048
  12. ZOSYN [Suspect]
     Active Substance: PIPERACILLIN SODIUM\TAZOBACTAM SODIUM
     Indication: URINARY TRACT INFECTION
     Dosage: 4.5 G, 3X/DAY
     Route: 041
     Dates: start: 20160820, end: 20160822
  13. NORVASC [Concomitant]
     Active Substance: AMLODIPINE BESYLATE
     Dosage: 2.5 MG, DAILY

REACTIONS (1)
  - Renal tubular necrosis [Recovered/Resolved]

NARRATIVE: CASE EVENT DATE: 20160822
